FAERS Safety Report 8605682 (Version 2)
Quarter: 2012Q4

REPORT INFORMATION
  Report Type: Report from Study
  Country: JP (occurrence: JP)
  Receive Date: 20120608
  Receipt Date: 20120911
  Transmission Date: 20130627
  Serious: Yes (Other)
  Sender: FDA-Public Use
  Company Number: JP-JNJFOC-20120602001

PATIENT
  Age: 60 Year
  Sex: Male
  Weight: 63 kg

DRUGS (17)
  1. REMICADE [Suspect]
     Indication: PSORIASIS
     Route: 042
     Dates: start: 20110412
  2. REMICADE [Suspect]
     Indication: PSORIASIS
     Route: 042
     Dates: start: 20110222
  3. REMICADE [Suspect]
     Indication: PSORIASIS
     Route: 042
     Dates: start: 20101216
  4. REMICADE [Suspect]
     Indication: PSORIASIS
     Route: 042
     Dates: start: 20101014
  5. REMICADE [Suspect]
     Indication: PSORIASIS
     Route: 042
     Dates: start: 20100819
  6. REMICADE [Suspect]
     Indication: PSORIASIS
     Route: 042
     Dates: start: 20100624
  7. REMICADE [Suspect]
     Indication: PSORIASIS
     Route: 042
     Dates: start: 20110607
  8. REMICADE [Suspect]
     Indication: PSORIASIS
     Route: 042
     Dates: start: 20110802
  9. REMICADE [Suspect]
     Indication: PSORIASIS
     Route: 042
     Dates: start: 20110927
  10. REMICADE [Suspect]
     Indication: PSORIASIS
     Dosage: total of 7 doses
     Route: 042
     Dates: start: 20111122
  11. REMICADE [Suspect]
     Indication: PSORIASIS
     Route: 042
     Dates: start: 20100527
  12. REMICADE [Suspect]
     Indication: PSORIASIS
     Route: 042
     Dates: start: 20100512
  13. ANTEBATE [Concomitant]
     Indication: PSORIASIS
     Dates: start: 20101111
  14. CYCLOSPORINE [Concomitant]
     Indication: PSORIASIS
     Route: 048
     Dates: start: 19950916, end: 20020618
  15. CYCLOSPORINE [Concomitant]
     Indication: PSORIASIS
     Route: 048
     Dates: start: 20020619, end: 20110511
  16. DERMOVATE [Concomitant]
     Indication: PSORIASIS
     Dates: end: 20101110
  17. DERMOVATE [Concomitant]
     Indication: PSORIASIS

REACTIONS (1)
  - Bladder transitional cell carcinoma [Recovering/Resolving]
